FAERS Safety Report 5174418-6 (Version None)
Quarter: 2006Q4

REPORT INFORMATION
  Report Type: 
  Country: None (occurrence: None)
  Receive Date: 20061206
  Receipt Date: 20061121
  Transmission Date: 20070319
  Serious: Yes (Hospitalization)
  Sender: FDA-Public Use
  Company Number: S05-FRA-02140-01

PATIENT
  Age: 91 Year
  Sex: Male

DRUGS (2)
  1. MEMANTINE HCL [Suspect]
     Indication: DRUG USE FOR UNKNOWN INDICATION
     Dosage: 10 MG QD PO
     Route: 048
  2. PAROXETINE HYDROCHLORIDE [Suspect]
     Indication: DRUG USE FOR UNKNOWN INDICATION
     Dosage: 20 MG QD PO
     Route: 048
     Dates: start: 20050404, end: 20050423

REACTIONS (4)
  - DYSPNOEA AT REST [None]
  - EPSTEIN-BARR VIRUS TEST POSITIVE [None]
  - HAEMOLYTIC ANAEMIA [None]
  - MYCOPLASMA INFECTION [None]
